FAERS Safety Report 5146531-0 (Version None)
Quarter: 2006Q4

REPORT INFORMATION
  Report Type: 
  Country: None (occurrence: None)
  Receive Date: 20061109
  Receipt Date: 20061027
  Transmission Date: 20070319
  Serious: Yes (Disabling, Other)
  Sender: FDA-Public Use
  Company Number: PHBS2006CH16706

PATIENT
  Age: 73 Year
  Sex: Male

DRUGS (1)
  1. ZOMETA [Suspect]
     Indication: MULTIPLE MYELOMA
     Route: 042
     Dates: start: 20030101

REACTIONS (3)
  - OSTEONECROSIS [None]
  - PURULENT DISCHARGE [None]
  - SINUSITIS [None]
